FAERS Safety Report 13362477 (Version 1)
Quarter: 2017Q1

REPORT INFORMATION
  Report Type: Spontaneous
  Country: US (occurrence: US)
  Receive Date: 20170322
  Receipt Date: 20170322
  Transmission Date: 20170429
  Serious: Yes (Other)
  Sender: FDA-Public Use
  Company Number: None

PATIENT
  Age: 52 Year
  Sex: Female
  Weight: 60.75 kg

DRUGS (4)
  1. BREO FLUICASONE [Concomitant]
  2. CALCIUM PLUS MINERALS [Concomitant]
  3. PROBIOTICS [Concomitant]
     Active Substance: PROBIOTICS NOS
  4. LEVOCETIRIZINE DIHYDROCHLORIDE 5 [Suspect]
     Active Substance: LEVOCETIRIZINE DIHYDROCHLORIDE
     Indication: SEASONAL ALLERGY
     Dosage: ?          QUANTITY:1 TABLET(S);?
     Route: 048
     Dates: start: 20140530, end: 20170224

REACTIONS (4)
  - Ear discomfort [None]
  - Chest discomfort [None]
  - Deafness [None]
  - Respiratory tract congestion [None]

NARRATIVE: CASE EVENT DATE: 20170224
